FAERS Safety Report 19493168 (Version 1)
Quarter: 2021Q3

REPORT INFORMATION
  Report Type: Spontaneous
  Country: US (occurrence: US)
  Receive Date: 20210705
  Receipt Date: 20210705
  Transmission Date: 20211014
  Serious: No
  Sender: FDA-Public Use
  Company Number: US-AMGEN-USASP2021100234

PATIENT
  Age: 72 Year
  Sex: Male

DRUGS (3)
  1. CINACALCET HCL [Suspect]
     Active Substance: CINACALCET HYDROCHLORIDE
     Indication: HYPERPARATHYROIDISM SECONDARY
     Dosage: 30 MILLIGRAM, 3 TIMES/WK
     Route: 065
     Dates: start: 20210421
  2. CINACALCET HCL [Suspect]
     Active Substance: CINACALCET HYDROCHLORIDE
     Dosage: 60 MILLIGRAM, 3 TIMES/WK
     Route: 065
     Dates: start: 20210512
  3. CINACALCET HCL [Suspect]
     Active Substance: CINACALCET HYDROCHLORIDE
     Dosage: 90 MILLIGRAM, 3 TIMES/WK
     Route: 065
     Dates: start: 20210526

REACTIONS (2)
  - Nipple pain [Unknown]
  - Breast enlargement [Unknown]
